FAERS Safety Report 9200634 (Version 1)
Quarter: 2013Q1

REPORT INFORMATION
  Report Type: Spontaneous
  Country: GB (occurrence: GB)
  Receive Date: 20130330
  Receipt Date: 20130330
  Transmission Date: 20140127
  Serious: Yes (Hospitalization)
  Sender: FDA-Public Use
  Company Number: GB-009507513-1303GBR013092

PATIENT
  Age: 71 Year
  Sex: Female

DRUGS (9)
  1. FOSAMAX [Suspect]
     Indication: OSTEOPOROSIS
     Dosage: 70 MG, QW
     Route: 048
     Dates: start: 19980101, end: 20130311
  2. ADCAL-D3 [Concomitant]
  3. ASPIRIN [Concomitant]
  4. ATORVASTATIN [Concomitant]
  5. DILTIAZEM HYDROCHLORIDE [Concomitant]
  6. ESOMEPRAZOLE [Concomitant]
  7. ESTRADIOL [Concomitant]
  8. MIRTAZAPINE [Concomitant]
  9. ACETAMINOPHEN [Concomitant]

REACTIONS (1)
  - Femur fracture [Recovering/Resolving]
